FAERS Safety Report 16253962 (Version 1)
Quarter: 2019Q2

REPORT INFORMATION
  Report Type: Spontaneous
  Country: CA (occurrence: CA)
  Receive Date: 20190430
  Receipt Date: 20190430
  Transmission Date: 20190711
  Serious: Yes (Hospitalization, Other)
  Sender: FDA-Public Use
  Company Number: CA-BAXTER-2019BAX006778

PATIENT
  Sex: Male

DRUGS (1)
  1. EXTRANEAL [Suspect]
     Active Substance: CALCIUM CHLORIDE\ICODEXTRIN\MAGNESIUM CHLORIDE\SODIUM CHLORIDE\SODIUM LACTATE
     Indication: PERITONEAL DIALYSIS
     Route: 033

REACTIONS (7)
  - Pneumonia aspiration [Unknown]
  - Abdominal pain upper [Unknown]
  - Fluid overload [Unknown]
  - Vomiting [Unknown]
  - Recalled product administered [Unknown]
  - Poor quality product administered [Unknown]
  - Headache [Unknown]

NARRATIVE: CASE EVENT DATE: 20190321
